FAERS Safety Report 5740308-0 (Version None)
Quarter: 2008Q2

REPORT INFORMATION
  Report Type: 
  Country: None (occurrence: None)
  Receive Date: 20080516
  Receipt Date: 20080505
  Transmission Date: 20081010
  Serious: Yes (Other)
  Sender: FDA-Public Use
  Company Number: US-BAYER-200821837NA

PATIENT
  Age: 56 Year
  Sex: Male

DRUGS (3)
  1. LEVITRA [Suspect]
     Indication: ERECTILE DYSFUNCTION
     Route: 048
     Dates: start: 20050101, end: 20080504
  2. VIAGRA [Concomitant]
  3. CIALIS [Concomitant]

REACTIONS (3)
  - CONTUSION [None]
  - LOSS OF CONSCIOUSNESS [None]
  - NAUSEA [None]
